FAERS Safety Report 6626192-1 (Version None)
Quarter: 2010Q1

REPORT INFORMATION
  Report Type: 
  Country: None (occurrence: None)
  Receive Date: 20100310
  Receipt Date: 20100224
  Transmission Date: 20100710
  Serious: Yes (Other)
  Sender: FDA-Public Use
  Company Number: NL-MYLANLABS-2010S1003202

PATIENT
  Sex: Male

DRUGS (1)
  1. AMLODIPINE [Suspect]
     Indication: ESSENTIAL HYPERTENSION
     Dates: start: 20070101

REACTIONS (3)
  - GINGIVAL HYPERPLASIA [None]
  - HYPERKERATOSIS [None]
  - IMPAIRED HEALING [None]
